FAERS Safety Report 7349681-3 (Version None)
Quarter: 2011Q1

REPORT INFORMATION
  Report Type: 
  Country: None (occurrence: None)
  Receive Date: 20110314
  Receipt Date: 20110214
  Transmission Date: 20110831
  Serious: No
  Sender: FDA-Public Use
  Company Number: US-B.I. PHARMACEUTICALS,INC./RIDGEFIELD-2011-BP-00640BP

PATIENT
  Sex: Male

DRUGS (5)
  1. MEDICATION NOT FURTHER SPECIFED [Concomitant]
     Indication: HYPERTENSION
  2. PRADAXA [Suspect]
     Indication: ATRIAL FIBRILLATION
     Dosage: 300 MG
     Route: 048
     Dates: start: 20101101, end: 20110103
  3. ARICEPT [Concomitant]
     Indication: AMNESIA
  4. WATER PILL [Concomitant]
     Indication: HYPERTENSION
  5. ZOCOR [Concomitant]
     Indication: BLOOD CHOLESTEROL INCREASED

REACTIONS (1)
  - DEVICE BREAKAGE [None]
